FAERS Safety Report 19982517 (Version 1)
Quarter: 2021Q4

REPORT INFORMATION
  Report Type: Spontaneous
  Country: US (occurrence: US)
  Receive Date: 20211020
  Receipt Date: 20211020
  Transmission Date: 20220303
  Serious: Yes (Hospitalization)
  Sender: FDA-Public Use
  Company Number: None

PATIENT
  Age: 20 Year
  Sex: Female
  Weight: 54 kg

DRUGS (11)
  1. VANCOMYCIN [Suspect]
     Active Substance: VANCOMYCIN
  2. ENTYVIO [Concomitant]
     Active Substance: VEDOLIZUMAB
  3. PREDNISONE [Concomitant]
     Active Substance: PREDNISONE
  4. LYRICA [Concomitant]
     Active Substance: PREGABALIN
  5. Diphenhydramine (BENADRYL) [Concomitant]
  6. Pentamidine (NEBUPENT) [Concomitant]
  7. LOVENOX [Concomitant]
     Active Substance: ENOXAPARIN SODIUM
  8. CYMBALTA [Concomitant]
     Active Substance: DULOXETINE HYDROCHLORIDE
  9. Pantoprazole DR (PROTONIX) [Concomitant]
  10. Albuterol (PROVENTIL) [Concomitant]
  11. Prochlorperazine (COMPAZINE) [Concomitant]

REACTIONS (12)
  - Acute kidney injury [None]
  - Crohn^s disease [None]
  - Pyrexia [None]
  - Leukocytosis [None]
  - Dehydration [None]
  - Fistula [None]
  - Abscess [None]
  - Disease complication [None]
  - Small intestinal obstruction [None]
  - Hyperaesthesia [None]
  - Intestinal stenosis [None]
  - Opiates [None]
